FAERS Safety Report 5754205-8 (Version None)
Quarter: 2008Q2

REPORT INFORMATION
  Report Type: 
  Country: None (occurrence: None)
  Receive Date: 20080530
  Receipt Date: 20080520
  Transmission Date: 20081010
  Serious: Yes (Hospitalization)
  Sender: FDA-Public Use
  Company Number: US-PFIZER INC-2008043076

PATIENT
  Sex: Female

DRUGS (2)
  1. SOLU-MEDROL [Suspect]
  2. BETASERON [Suspect]
     Indication: PRIMARY PROGRESSIVE MULTIPLE SCLEROSIS
     Dosage: TEXT:8 MIU
     Route: 058

REACTIONS (3)
  - BLOOD GLUCOSE INCREASED [None]
  - FLUID RETENTION [None]
  - MULTIPLE SCLEROSIS [None]
